FAERS Safety Report 23227937 (Version 1)
Quarter: 2023Q4

REPORT INFORMATION
  Report Type: Spontaneous
  Country: US (occurrence: US)
  Receive Date: 20231125
  Receipt Date: 20231125
  Transmission Date: 20240110
  Serious: Yes (Other)
  Sender: FDA-Public Use
  Company Number: US-002147023-NVSC2023US246988

PATIENT
  Age: 5 Month
  Sex: Female

DRUGS (1)
  1. ZOLGENSMA [Suspect]
     Active Substance: ONASEMNOGENE ABEPARVOVEC-XIOI
     Indication: Spinal muscular atrophy
     Dosage: ONCE/SINGLE (ONE SINGLE DOSE)
     Route: 065
     Dates: start: 20230914

REACTIONS (5)
  - Seizure [Unknown]
  - Viral upper respiratory tract infection [Unknown]
  - Rash [Unknown]
  - Pyrexia [Unknown]
  - Troponin I increased [Recovered/Resolved]
